FAERS Safety Report 8023746-5 (Version None)
Quarter: 2012Q1

REPORT INFORMATION
  Report Type: 
  Country: None (occurrence: None)
  Receive Date: 20120105
  Receipt Date: 20111229
  Transmission Date: 20120608
  Serious: Yes (Death)
  Sender: FDA-Public Use
  Company Number: US-CELGENEUS-163-21880-11102703

PATIENT
  Sex: Male

DRUGS (3)
  1. REVLIMID [Suspect]
     Dosage: 5 MILLIGRAM
     Route: 048
     Dates: start: 20110901, end: 20110101
  2. REVLIMID [Suspect]
     Dosage: 5 MILLIGRAM
     Route: 048
     Dates: start: 20110501, end: 20110601
  3. REVLIMID [Suspect]
     Dosage: 10MG-15MG-25MG-20MG
     Route: 048
     Dates: start: 20110601, end: 20110101

REACTIONS (1)
  - CHRONIC LYMPHOCYTIC LEUKAEMIA [None]
